FAERS Safety Report 8012286-5 (Version None)
Quarter: 2011Q4

REPORT INFORMATION
  Report Type: 
  Country: None (occurrence: None)
  Receive Date: 20111228
  Receipt Date: 20111219
  Transmission Date: 20120403
  Serious: Yes (Other)
  Sender: FDA-Public Use
  Company Number: US-ASTRAZENECA-2011SE77048

PATIENT
  Age: 49 Year
  Sex: Female

DRUGS (3)
  1. PULMICORT [Suspect]
     Route: 055
  2. PRILOSEC [Suspect]
     Route: 048
  3. NEXIUM [Suspect]
     Route: 048

REACTIONS (3)
  - CEREBROVASCULAR ACCIDENT [None]
  - PULMONARY THROMBOSIS [None]
  - ASTHMA [None]
